FAERS Safety Report 25945477 (Version 2)
Quarter: 2025Q4

REPORT INFORMATION
  Report Type: Spontaneous
  Country: EU (occurrence: EU)
  Receive Date: 20251021
  Receipt Date: 20251024
  Transmission Date: 20260117
  Serious: Yes (Death)
  Sender: TAIHO ONCOLOGY INC
  Company Number: EU-MMM-Otsuka-ODLZ6PJA

PATIENT
  Age: 91 Year
  Sex: Female

DRUGS (4)
  1. INQOVI [Suspect]
     Active Substance: CEDAZURIDINE\DECITABINE
     Indication: Acute myeloid leukaemia
     Dosage: ONE TABLET ONCE DAILY FOR FIVE DAYS - 28 DAYS TREATMENT CYCLE (INTAKE JUST DAY ONE TO DAY 5); FILM-C
     Route: 048
     Dates: start: 20241001, end: 20241005
  2. INQOVI [Suspect]
     Active Substance: CEDAZURIDINE\DECITABINE
     Dosage: ONE TABLET ONCE DAILY FOR FIVE DAYS - 28 DAYS TREATMENT CYCLE (INTAKE JUST DAY ONE TO DAY 5)?FILM-CO
     Route: 048
     Dates: start: 20241105, end: 20241109
  3. CIPROFLOXACIN [Concomitant]
     Active Substance: CIPROFLOXACIN
     Indication: Product used for unknown indication
     Dosage: 250 MG (1-0-1)
     Route: 065
  4. FILGRASTIM [Concomitant]
     Active Substance: FILGRASTIM
     Indication: Product used for unknown indication
     Dosage: 30 MIO E, BIW
     Route: 065

REACTIONS (1)
  - Death [Fatal]

NARRATIVE: CASE EVENT DATE: 20250901
